FAERS Safety Report 8340589-3 (Version None)
Quarter: 2012Q2

REPORT INFORMATION
  Report Type: 
  Country: None (occurrence: None)
  Receive Date: 20120507
  Receipt Date: 20120501
  Transmission Date: 20120825
  Serious: Yes (Life-Threatening, Hospitalization, Other)
  Sender: FDA-Public Use
  Company Number: SE-ROCHE-1059103

PATIENT
  Sex: Male

DRUGS (3)
  1. EPIRUBICIN HYDROCHLORIDE [Suspect]
     Indication: GASTRIC CANCER
     Dosage: DATE OF LAST TREATMENT: 29/MAR/2012
     Route: 042
     Dates: start: 20120308
  2. XELODA [Suspect]
     Indication: GASTRIC CANCER
     Dosage: DATE OF LAST TREATMENT: 11/APR/2012
     Route: 048
     Dates: start: 20120308
  3. OXALIPLATIN [Suspect]
     Indication: GASTRIC CANCER
     Dosage: DATE OF LAST TREATMENT: 29/MAR/2012
     Route: 042
     Dates: start: 20120308

REACTIONS (2)
  - MALNUTRITION [None]
  - PULMONARY EMBOLISM [None]
